FAERS Safety Report 9500700 (Version 2)
Quarter: 2013Q3

REPORT INFORMATION
  Report Type: Spontaneous
  Country: US (occurrence: US)
  Receive Date: 20130905
  Receipt Date: 20130911
  Transmission Date: 20140515
  Serious: Yes (Other)
  Sender: FDA-Public Use
  Company Number: US-PFIZER INC-2013252611

PATIENT
  Age: 79 Year
  Sex: Female

DRUGS (2)
  1. CORDARONE [Suspect]
     Dosage: UNK
  2. TIKOSYN [Suspect]
     Dosage: UNK
     Dates: start: 2009

REACTIONS (9)
  - Urinary tract infection [Unknown]
  - Uterine disorder [Unknown]
  - Supraventricular tachycardia [Unknown]
  - Hyperhidrosis [Unknown]
  - Chills [Unknown]
  - Food poisoning [Unknown]
  - Haematoma [Recovered/Resolved]
  - Erythema [Unknown]
  - Hormone level abnormal [Unknown]
